FAERS Safety Report 9778099 (Version 2)
Quarter: 2014Q1

REPORT INFORMATION
  Report Type: Report from Study
  Country: CA (occurrence: CA)
  Receive Date: 20131223
  Receipt Date: 20140227
  Transmission Date: 20141002
  Serious: Yes (Death, Hospitalization, Other)
  Sender: FDA-Public Use
  Company Number: CA-JNJFOC-20131212287

PATIENT
  Age: 58 Year
  Sex: Female
  Weight: 42.2 kg

DRUGS (2)
  1. REMICADE [Suspect]
     Indication: RHEUMATOID ARTHRITIS
     Route: 042
     Dates: start: 20090330, end: 20130104
  2. METHOTREXATE [Concomitant]
     Route: 065

REACTIONS (3)
  - Multi-organ failure [Fatal]
  - Wound [Not Recovered/Not Resolved]
  - Dislocation of vertebra [Not Recovered/Not Resolved]
